FAERS Safety Report 6566211-4 (Version None)
Quarter: 2010Q1

REPORT INFORMATION
  Report Type: 
  Country: None (occurrence: None)
  Receive Date: 20100202
  Receipt Date: 20100121
  Transmission Date: 20100710
  Serious: Yes (Other)
  Sender: FDA-Public Use
  Company Number: US-PFIZER INC-2010009884

PATIENT
  Sex: Male
  Weight: 90.703 kg

DRUGS (5)
  1. CHANTIX [Suspect]
     Indication: SMOKING CESSATION THERAPY
     Dosage: 0.5 MG, 1X/DAY
     Route: 048
     Dates: start: 20100101, end: 20100101
  2. CHANTIX [Suspect]
     Dosage: 0.5 MG, UNK
     Route: 048
     Dates: start: 20090601, end: 20090601
  3. LEVOTHYROXINE [Concomitant]
     Dosage: 50 UG, UNK
  4. METFORMIN [Concomitant]
     Dosage: 850 MG, 2X/DAY
  5. FEXOFENADINE [Concomitant]
     Dosage: 180 MG, UNK

REACTIONS (2)
  - CYANOSIS [None]
  - SWELLING FACE [None]
